FAERS Safety Report 23949539 (Version 6)
Quarter: 2025Q1

REPORT INFORMATION
  Report Type: Report from Study
  Country: CA (occurrence: CA)
  Receive Date: 20240607
  Receipt Date: 20250211
  Transmission Date: 20250409
  Serious: Yes (Hospitalization, Other)
  Sender: TAKEDA
  Company Number: CA-TAKEDA-2024TUS034035

PATIENT
  Age: 65 Year
  Sex: Female

DRUGS (5)
  1. VEDOLIZUMAB [Suspect]
     Active Substance: VEDOLIZUMAB
     Indication: Colitis microscopic
  2. VEDOLIZUMAB [Suspect]
     Active Substance: VEDOLIZUMAB
     Dosage: 300 MILLIGRAM, Q4WEEKS
     Dates: start: 20240726
  3. ENTOCORT [Concomitant]
     Active Substance: BUDESONIDE
  4. CHOLESTYRAMINE [Concomitant]
     Active Substance: CHOLESTYRAMINE
  5. ASPIRIN [Concomitant]
     Active Substance: ASPIRIN

REACTIONS (9)
  - Transient ischaemic attack [Unknown]
  - Cerebrovascular accident [Recovered/Resolved]
  - Diarrhoea [Not Recovered/Not Resolved]
  - Coccydynia [Recovering/Resolving]
  - Headache [Recovering/Resolving]
  - Fatigue [Recovering/Resolving]
  - Back injury [Recovering/Resolving]
  - Off label use [Unknown]
  - Fall [Recovering/Resolving]

NARRATIVE: CASE EVENT DATE: 20240229
